FAERS Safety Report 16209262 (Version 3)
Quarter: 2019Q2

REPORT INFORMATION
  Report Type: Spontaneous
  Country: US (occurrence: US)
  Receive Date: 20190417
  Receipt Date: 20190528
  Transmission Date: 20190711
  Serious: Yes (Other)
  Sender: FDA-Public Use
  Company Number: US-ASTRAZENECA-2019SE56770

PATIENT
  Age: 89 Year
  Sex: Female
  Weight: 81.6 kg

DRUGS (9)
  1. BEVESPI AEROSPHERE [Suspect]
     Active Substance: FORMOTEROL FUMARATE\GLYCOPYRROLATE
     Indication: CHRONIC OBSTRUCTIVE PULMONARY DISEASE
     Dosage: 9 UG/4.8 UG, TWO PUFFS TWICE DAILY
     Route: 055
     Dates: start: 2017
  2. SALINE SPRAY [Concomitant]
     Active Substance: SODIUM CHLORIDE
     Indication: NASAL CONGESTION
     Dosage: AS REQUIRED
     Route: 045
  3. DILTIAZEM. [Concomitant]
     Active Substance: DILTIAZEM
     Indication: BLOOD PRESSURE ABNORMAL
     Route: 048
  4. AZELASTINE. [Concomitant]
     Active Substance: AZELASTINE HYDROCHLORIDE
     Indication: NASAL CONGESTION
     Dosage: TWO SPRAYS TWICE A DAY, USE FOR THREE DAYS AND THEN OFF FOR A WHILE, USUALLY A WEEK, THEN BACK ON IT
     Route: 045
  5. ALBUTEROL. [Suspect]
     Active Substance: ALBUTEROL
     Dosage: UNKNOWN
     Route: 065
  6. BUMETANIDE. [Concomitant]
     Active Substance: BUMETANIDE
     Indication: DIURETIC THERAPY
     Route: 048
  7. BAYER COATED ASPIRIN [Concomitant]
     Indication: ANTICOAGULANT THERAPY
     Route: 048
  8. OMEPRAZOLE. [Suspect]
     Active Substance: OMEPRAZOLE
     Indication: GASTROOESOPHAGEAL REFLUX DISEASE
     Route: 048
     Dates: start: 2017
  9. ROSUVASTATIN. [Suspect]
     Active Substance: ROSUVASTATIN
     Indication: BLOOD CHOLESTEROL ABNORMAL
     Route: 048
     Dates: start: 2016

REACTIONS (17)
  - Gastrooesophageal reflux disease [Unknown]
  - Malaise [Unknown]
  - Memory impairment [Unknown]
  - Anaemia [Unknown]
  - Product dose omission [Unknown]
  - Cerebrovascular accident [Unknown]
  - Dyspnoea [Unknown]
  - Atrioventricular block [Unknown]
  - Circumstance or information capable of leading to medication error [Unknown]
  - Cerebral infarction [Unknown]
  - Arthritis [Unknown]
  - Depressed mood [Unknown]
  - Chronic obstructive pulmonary disease [Unknown]
  - Asthenia [Unknown]
  - Nervousness [Unknown]
  - Device issue [Unknown]
  - Nasal congestion [Unknown]

NARRATIVE: CASE EVENT DATE: 2017
